FAERS Safety Report 10464839 (Version 1)
Quarter: 2014Q3

REPORT INFORMATION
  Report Type: Report from Study
  Country: CA (occurrence: CA)
  Receive Date: 20140919
  Receipt Date: 20140919
  Transmission Date: 20150326
  Serious: Yes (Other)
  Sender: FDA-Public Use
  Company Number: CA-BRISTOL-MYERS SQUIBB COMPANY-21394648

PATIENT
  Age: 52 Year
  Sex: Male

DRUGS (7)
  1. ASPIRIN. [Concomitant]
     Active Substance: ASPIRIN
  2. NAPROXEN. [Concomitant]
     Active Substance: NAPROXEN
  3. PLAQUENIL [Concomitant]
     Active Substance: HYDROXYCHLOROQUINE SULFATE
  4. APO-HYDRO [Concomitant]
     Active Substance: HYDROCHLOROTHIAZIDE
  5. FOLIC ACID. [Concomitant]
     Active Substance: FOLIC ACID
  6. LOSARTAN [Concomitant]
     Active Substance: LOSARTAN
  7. ORENCIA [Suspect]
     Active Substance: ABATACEPT
     Indication: RHEUMATOID ARTHRITIS
     Dosage: INFUSION FOR 09-SEP-2014 WAS CANCELLED AND NOW ONGOING
     Route: 042
     Dates: start: 20130626

REACTIONS (3)
  - Intervertebral disc protrusion [Not Recovered/Not Resolved]
  - Dyspnoea [Not Recovered/Not Resolved]
  - Sciatica [Not Recovered/Not Resolved]

NARRATIVE: CASE EVENT DATE: 20140906
